FAERS Safety Report 5442616-X (Version None)
Quarter: 2007Q3

REPORT INFORMATION
  Report Type: 
  Country: None (occurrence: None)
  Receive Date: 20070904
  Receipt Date: 20070822
  Transmission Date: 20080115
  Serious: Yes (Other)
  Sender: FDA-Public Use
  Company Number: US-SHR-US-2007-003916

PATIENT
  Age: 54 Year
  Sex: Female
  Weight: 94.331 kg

DRUGS (20)
  1. BETASERON [Suspect]
     Indication: RELAPSING-REMITTING MULTIPLE SCLEROSIS
     Dosage: 8 MIU, EVERY 2D
     Route: 058
     Dates: start: 20050602
  2. ZONEGRAN [Concomitant]
     Dosage: 100 MG, 2X/DAY
  3. ZONEGRAN [Concomitant]
     Dosage: 200 UNK, 2X/DAY
  4. WELLBUTRIN - SLOW RELEASE [Concomitant]
     Dosage: 200 MG, AM
  5. WELLBUTRIN - SLOW RELEASE [Concomitant]
     Dosage: 100 MG, PM
  6. WELLBUTRIN - SLOW RELEASE [Concomitant]
     Dosage: 450 UNK, UNK
  7. ZOLOFT [Concomitant]
     Dosage: 100 MG, AM + PM
  8. PROVIGIL [Concomitant]
     Dosage: 200 MG, 2X/DAY
  9. PROVIGIL [Concomitant]
     Dosage: 200 MG/D, UNK
  10. BACLOFEN [Concomitant]
     Dosage: 40 MG, 3X/DAY
  11. BACLOFEN [Concomitant]
     Dosage: 10 MG, 3X/DAY
  12. COENZYME W/B COMPLEX [Concomitant]
     Dosage: UNK, 2X/DAY
  13. ALIVE MULTIVIT/MINERAL [Concomitant]
     Dosage: UNK, 3X/DAY
  14. PRIMADOPHILUS BIFIDUS [Concomitant]
  15. ASCORBIC ACID [Concomitant]
     Dosage: 1000 MG, 3X/DAY
  16. VITAMIN CAP [Concomitant]
  17. DESYREL [Concomitant]
     Dosage: UNK, UNK
  18. ZANAFLEX [Concomitant]
     Dosage: 2 MG/D, UNK
  19. CORGARD [Concomitant]
     Dosage: 20 MG, UNK
  20. TOFRANIL [Concomitant]
     Dates: end: 20060101

REACTIONS (11)
  - BALANCE DISORDER [None]
  - COGNITIVE DISORDER [None]
  - DILATATION VENTRICULAR [None]
  - DISTURBANCE IN ATTENTION [None]
  - HUNGER [None]
  - MUSCULOSKELETAL CHEST PAIN [None]
  - MYOCLONUS [None]
  - NECK PAIN [None]
  - PAIN [None]
  - RESTLESS LEGS SYNDROME [None]
  - WEIGHT INCREASED [None]
